FAERS Safety Report 8954242 (Version 1)
Quarter: 2012Q4

REPORT INFORMATION
  Report Type: Report from Study
  Country: JP (occurrence: JP)
  Receive Date: 20121207
  Receipt Date: 20121207
  Transmission Date: 20130627
  Serious: Yes (Hospitalization, Other)
  Sender: FDA-Public Use
  Company Number: PHHY2012JP112598

PATIENT
  Age: 33 Year
  Sex: Female
  Weight: 51 kg

DRUGS (11)
  1. FTY 720 [Suspect]
     Dosage: 0.5 mg, QD
     Route: 048
     Dates: start: 20120112
  2. PREDONINE//PREDNISOLONE ACETATE [Concomitant]
     Indication: PROPHYLAXIS
     Dosage: 15 mg, UNK
     Route: 048
  3. BAKTAR [Concomitant]
     Indication: PROPHYLAXIS
     Dosage: 1 DF, UNK
     Route: 048
  4. TAKEPRON [Concomitant]
     Indication: PROPHYLAXIS
     Dosage: 15 mg, UNK
     Route: 048
     Dates: end: 20120809
  5. MYSLEE [Concomitant]
     Indication: INSOMNIA
     Dosage: 10 mg, UNK
     Route: 048
  6. MUCOSTA [Concomitant]
     Indication: PROPHYLAXIS
     Dosage: 200 mg, UNK
     Route: 048
  7. MAGMITT [Concomitant]
     Indication: PROPHYLAXIS
     Dosage: 660 mg, UNK
     Route: 048
  8. VITAMEDIN CAPSULE [Concomitant]
     Indication: PROPHYLAXIS
     Dosage: 50 mg, UNK
     Route: 048
  9. LANDSEN [Concomitant]
     Indication: PROPHYLAXIS
     Dosage: 1.5 mg, UNK
     Route: 048
  10. FOSAMAC [Concomitant]
     Indication: PROPHYLAXIS
     Dosage: 35 mg, UNK
     Route: 048
     Dates: end: 20120127
  11. BONOTEO [Concomitant]
     Indication: PROPHYLAXIS
     Dosage: 50 mg, UNK
     Dates: end: 20120127

REACTIONS (5)
  - White blood cell count decreased [Unknown]
  - Lymphocyte count decreased [Unknown]
  - Neutrophil count increased [Unknown]
  - Blood pressure systolic decreased [Unknown]
  - Blood creatinine decreased [Unknown]
